FAERS Safety Report 8795132 (Version 1)
Quarter: 2012Q4

REPORT INFORMATION
  Report Type: 
  Country: US (occurrence: US)
  Receive Date: 20120917
  Receipt Date: 20120917
  Transmission Date: 20130627
  Serious: Yes (Death)
  Sender: FDA-Public Use
  Company Number: US-ROCHE-1124423

PATIENT
  Sex: Female

DRUGS (4)
  1. AVASTIN [Suspect]
     Indication: LUNG NEOPLASM MALIGNANT
     Route: 065
     Dates: start: 20060512, end: 20060721
  2. VP16/ARA-C/CISPLATIN/DECADRON [Concomitant]
  3. CARBOPLATIN [Concomitant]
  4. TAXOL [Concomitant]

REACTIONS (1)
  - Death [Fatal]
